FAERS Safety Report 5557973-3 (Version None)
Quarter: 2007Q4

REPORT INFORMATION
  Report Type: 
  Country: None (occurrence: None)
  Receive Date: 20071211
  Receipt Date: 20071128
  Transmission Date: 20080405
  Serious: Yes (Hospitalization)
  Sender: FDA-Public Use
  Company Number: ENT-2006-0169

PATIENT
  Age: 52 Year
  Sex: Male

DRUGS (4)
  1. ENTACAPONE [Suspect]
     Indication: PARKINSON'S DISEASE
     Dosage: 1 TABLET, 5X DAILY, ORAL
     Route: 048
  2. CO-CARELDOPA [Concomitant]
  3. TEGRETAL RETARD [Concomitant]
  4. LIPRINEL CAP [Concomitant]

REACTIONS (3)
  - GENERAL PHYSICAL HEALTH DETERIORATION [None]
  - PNEUMONIA [None]
  - THERAPEUTIC RESPONSE UNEXPECTED WITH DRUG SUBSTITUTION [None]
